FAERS Safety Report 25193061 (Version 1)
Quarter: 2025Q2

REPORT INFORMATION
  Report Type: Spontaneous
  Country: US (occurrence: US)
  Receive Date: 20250414
  Receipt Date: 20250414
  Transmission Date: 20250717
  Serious: No
  Sender: GLAXOSMITHKLINE
  Company Number: US-GSK-US2025032338

PATIENT
  Age: 8 Decade
  Sex: Female

DRUGS (2)
  1. MOMELOTINIB [Suspect]
     Active Substance: MOMELOTINIB
     Indication: Myelofibrosis
     Dates: start: 202407, end: 202408
  2. MOMELOTINIB [Suspect]
     Active Substance: MOMELOTINIB
     Indication: Anaemia

REACTIONS (3)
  - Diarrhoea [Recovered/Resolved]
  - Loss of personal independence in daily activities [Unknown]
  - Drug ineffective [Unknown]
